FAERS Safety Report 4972128-9 (Version None)
Quarter: 2006Q2

REPORT INFORMATION
  Report Type: 
  Country: None (occurrence: None)
  Receive Date: 20060413
  Receipt Date: 20060404
  Transmission Date: 20061013
  Serious: Yes (Other)
  Sender: FDA-Public Use
  Company Number: JP-JNJFOC-20060401400

PATIENT
  Age: 74 Year
  Sex: Male

DRUGS (2)
  1. MICONAZOLE [Suspect]
     Indication: DRUG USE FOR UNKNOWN INDICATION
     Route: 048
     Dates: start: 20060215, end: 20060305
  2. WARFARIN [Interacting]
     Indication: UNEVALUABLE EVENT

REACTIONS (5)
  - DRUG INTERACTION [None]
  - HAEMORRHAGE SUBCUTANEOUS [None]
  - ILLUSION [None]
  - PARALYSIS [None]
  - RETROPERITONEAL HAEMORRHAGE [None]
